FAERS Safety Report 17359751 (Version 1)
Quarter: 2020Q1

REPORT INFORMATION
  Report Type: Spontaneous
  Country: US (occurrence: US)
  Receive Date: 20200203
  Receipt Date: 20200203
  Transmission Date: 20200409
  Serious: Yes (Death, Other)
  Sender: FDA-Public Use
  Company Number: US-CHEPLA-C20200489

PATIENT
  Age: 5 Decade
  Sex: Male

DRUGS (3)
  1. GANCICLOVIR (GANCICLOVIR) [Suspect]
     Active Substance: GANCICLOVIR
     Route: 042
     Dates: start: 201403
  2. GANCICLOVIR (GANCICLOVIR) [Suspect]
     Active Substance: GANCICLOVIR
     Route: 042
     Dates: start: 201406
  3. VALGANCICLOVIR. [Suspect]
     Active Substance: VALGANCICLOVIR
     Route: 048
     Dates: start: 2014

REACTIONS (7)
  - Cytomegalovirus viraemia [Unknown]
  - Haemophagocytic lymphohistiocytosis [Fatal]
  - Pneumonia cytomegaloviral [Fatal]
  - Encephalitis cytomegalovirus [Fatal]
  - Pyrexia [Unknown]
  - Drug ineffective [Not Recovered/Not Resolved]
  - Cytomegalovirus chorioretinitis [Unknown]

NARRATIVE: CASE EVENT DATE: 201403
